FAERS Safety Report 6099412-2 (Version None)
Quarter: 2009Q1

REPORT INFORMATION
  Report Type: 
  Country: None (occurrence: None)
  Receive Date: 20090225
  Receipt Date: 20090225
  Transmission Date: 20090719
  Serious: Yes (Other)
  Sender: FDA-Public Use
  Company Number: None

PATIENT
  Age: 85 Year
  Sex: Female
  Weight: 78.9259 kg

DRUGS (1)
  1. LYRICA [Suspect]
     Indication: NEURALGIA
     Dosage: 1 CAPSULE TWICE DAILY PO
     Route: 048
     Dates: start: 20090129, end: 20090130

REACTIONS (10)
  - ACTIVITIES OF DAILY LIVING IMPAIRED [None]
  - COORDINATION ABNORMAL [None]
  - DISORIENTATION [None]
  - DYSKINESIA [None]
  - LOGORRHOEA [None]
  - MEMORY IMPAIRMENT [None]
  - MENTAL STATUS CHANGES [None]
  - REPETITIVE SPEECH [None]
  - STARING [None]
  - VISUAL IMPAIRMENT [None]
